FAERS Safety Report 8123279-1 (Version None)
Quarter: 2012Q1

REPORT INFORMATION
  Report Type: 
  Country: None (occurrence: None)
  Receive Date: 20120208
  Receipt Date: 20120206
  Transmission Date: 20120608
  Serious: Yes (Life-Threatening, Hospitalization, Other)
  Sender: FDA-Public Use
  Company Number: GB-PFIZER INC-2011230766

PATIENT
  Age: 38 Year
  Sex: Male

DRUGS (3)
  1. VARENICLINE TARTRATE [Suspect]
     Indication: SMOKING CESSATION THERAPY
     Dosage: UNK
     Dates: start: 20101101
  2. VARENICLINE TARTRATE [Suspect]
     Dosage: UNK
     Dates: start: 20110601, end: 20110801
  3. VARENICLINE TARTRATE [Suspect]
     Dosage: 500 UG, 2X/DAY
     Route: 048
     Dates: start: 20110802, end: 20110817

REACTIONS (3)
  - ROAD TRAFFIC ACCIDENT [None]
  - EPILEPSY [None]
  - CONVULSION [None]
